FAERS Safety Report 18103139 (Version 1)
Quarter: 2020Q3

REPORT INFORMATION
  Report Type: Spontaneous
  Country: US (occurrence: US)
  Receive Date: 20200731
  Receipt Date: 20200731
  Transmission Date: 20201103
  Serious: Yes (Other)
  Sender: FDA-Public Use
  Company Number: None

PATIENT
  Age: 70 Year
  Sex: Female
  Weight: 57.15 kg

DRUGS (4)
  1. PB8 [Concomitant]
  2. METRONIDAZOLE TOPICAL CREAM 0.75% G+W LABORATORIES, INC. NEW JERSEY [Suspect]
     Active Substance: METRONIDAZOLE
  3. WOMEN^S FORMULA [Concomitant]
  4. HYDROCORTISONE BUTYRATE CREAM 0.1% [Suspect]
     Active Substance: HYDROCORTISONE BUTYRATE
     Indication: ROSACEA
     Dosage: ?          QUANTITY:1 CREAM;?
     Route: 061
     Dates: start: 20200627, end: 20200730

REACTIONS (11)
  - Malaise [None]
  - Alanine aminotransferase increased [None]
  - Hypersensitivity [None]
  - Fatigue [None]
  - Palpitations [None]
  - Hypertension [None]
  - Heart rate increased [None]
  - Aspartate aminotransferase increased [None]
  - Headache [None]
  - Dizziness [None]
  - Drug intolerance [None]

NARRATIVE: CASE EVENT DATE: 20200730
